FAERS Safety Report 7733873-5 (Version None)
Quarter: 2011Q3

REPORT INFORMATION
  Report Type: 
  Country: None (occurrence: None)
  Receive Date: 20110906
  Receipt Date: 20110906
  Transmission Date: 20111222
  Serious: Yes (Other)
  Sender: FDA-Public Use
  Company Number: None

PATIENT
  Sex: Male
  Weight: 117.9352 kg

DRUGS (1)
  1. TYLENOL [Suspect]
     Dosage: 500 MILLIGRAM WHEN NEEDED BEFORE 2004 AND UP TO 2008

REACTIONS (7)
  - HEPATIC STEATOSIS [None]
  - RENAL IMPAIRMENT [None]
  - PRODUCT TASTE ABNORMAL [None]
  - GASTROOESOPHAGEAL REFLUX DISEASE [None]
  - PRODUCT CONTAMINATION PHYSICAL [None]
  - PRODUCT ODOUR ABNORMAL [None]
  - PRODUCT QUALITY ISSUE [None]
